FAERS Safety Report 24120119 (Version 1)
Quarter: 2024Q3

REPORT INFORMATION
  Report Type: Spontaneous
  Country: TH (occurrence: TH)
  Receive Date: 20240722
  Receipt Date: 20240722
  Transmission Date: 20241017
  Serious: Yes (Other)
  Sender: NOVARTIS
  Company Number: TH-002147023-NVSC2024TH149056

PATIENT
  Age: 78 Year
  Sex: Male

DRUGS (2)
  1. ZYKADIA [Suspect]
     Active Substance: CERITINIB
     Indication: Non-small cell lung cancer
     Dosage: 450 MG, QD (WITH MEAL ONCE DAILY)
     Route: 048
     Dates: start: 202001
  2. ZYKADIA [Suspect]
     Active Substance: CERITINIB
     Indication: Anaplastic lymphoma kinase gene mutation

REACTIONS (9)
  - Metastases to lymph nodes [Unknown]
  - Necrotic lymphadenopathy [Unknown]
  - Metastases to chest wall [Unknown]
  - Non-small cell lung cancer [Unknown]
  - Malignant neoplasm progression [Unknown]
  - Lymphadenopathy [Unknown]
  - Pulmonary mass [Unknown]
  - Small airways disease [Recovered/Resolved]
  - Neck mass [Unknown]
